FAERS Safety Report 9367325 (Version 4)
Quarter: 2014Q4

REPORT INFORMATION
  Report Type: Spontaneous
  Country: US (occurrence: US)
  Receive Date: 20130625
  Receipt Date: 20141001
  Transmission Date: 20150529
  Serious: Yes (Hospitalization, Disabling, Other)
  Sender: FDA-Public Use
  Company Number: US-009507513-1306USA008259

PATIENT
  Sex: Male

DRUGS (4)
  1. FOSAMAX [Suspect]
     Active Substance: ALENDRONATE SODIUM
     Indication: OSTEOPOROSIS
  2. ALENDRONATE SODIUM. [Suspect]
     Active Substance: ALENDRONATE SODIUM
     Indication: OSTEOPENIA
     Dosage: 70 MG, QW
     Route: 048
     Dates: start: 20061212, end: 20110325
  3. FOSAMAX [Suspect]
     Active Substance: ALENDRONATE SODIUM
     Indication: OSTEOPENIA
     Dosage: 70 MG, QW
     Route: 048
     Dates: start: 200612
  4. ASPIRIN. [Concomitant]
     Active Substance: ASPIRIN
     Indication: ARTHRITIS

REACTIONS (43)
  - Acute respiratory failure [Unknown]
  - Encephalopathy [Unknown]
  - Intermittent claudication [Unknown]
  - Hypoaesthesia oral [Unknown]
  - Brow ptosis [Unknown]
  - Jaw operation [Unknown]
  - Oral infection [Unknown]
  - Tooth fracture [Unknown]
  - Glucose tolerance impaired [Unknown]
  - Macular degeneration [Unknown]
  - Prostatic specific antigen increased [Unknown]
  - Appendicectomy [Unknown]
  - Benign prostatic hyperplasia [Unknown]
  - Haemorrhoids [Unknown]
  - Skin mass [Unknown]
  - Vitreous detachment [Unknown]
  - Oral dysaesthesia [Unknown]
  - Muscle injury [Unknown]
  - Maxillofacial operation [Unknown]
  - Drug ineffective [Unknown]
  - Prostatic operation [Unknown]
  - Pernicious anaemia [Unknown]
  - Facial asymmetry [Unknown]
  - Osteonecrosis of jaw [Not Recovered/Not Resolved]
  - Tooth impacted [Unknown]
  - Cellulitis [Unknown]
  - Hyperlipidaemia [Unknown]
  - Spinal osteoarthritis [Unknown]
  - Jaw disorder [Unknown]
  - Muscle hypertrophy [Unknown]
  - Procedural hypertension [Unknown]
  - Synovial cyst [Unknown]
  - Diverticulum [Unknown]
  - Post procedural haematoma [Unknown]
  - Haematoma evacuation [Unknown]
  - Osteomyelitis [Unknown]
  - Jaw fracture [Unknown]
  - Hyponatraemia [Unknown]
  - Scoliosis [Unknown]
  - Hernia repair [Unknown]
  - Nocturia [Unknown]
  - Arthralgia [Unknown]
  - Face oedema [Unknown]

NARRATIVE: CASE EVENT DATE: 20070222
